FAERS Safety Report 5050614-3 (Version None)
Quarter: 2006Q3

REPORT INFORMATION
  Report Type: 
  Country: None (occurrence: None)
  Receive Date: 20060707
  Receipt Date: 20060623
  Transmission Date: 20061208
  Serious: Yes (Hospitalization)
  Sender: FDA-Public Use
  Company Number: IE-2006-017522

PATIENT
  Age: 37 Year
  Sex: Male

DRUGS (5)
  1. BETASERON [Suspect]
     Indication: RELAPSING-REMITTING MULTIPLE SCLEROSIS
     Dosage: SUBCUTANEOUS
     Route: 058
  2. BETASERON [Suspect]
     Indication: RELAPSING-REMITTING MULTIPLE SCLEROSIS
     Dosage: SUBCUTANEOUS
     Route: 058
  3. SUMATRIPTAN SUCCINATE [Concomitant]
  4. DICLOFENAC [Concomitant]
  5. GLATIRAMER ACETATE [Concomitant]

REACTIONS (7)
  - ANGIOTENSIN CONVERTING ENZYME INCREASED [None]
  - ERYTHEMA NODOSUM [None]
  - INFLUENZA LIKE ILLNESS [None]
  - INJECTION SITE ATROPHY [None]
  - INJECTION SITE CELLULITIS [None]
  - PANNICULITIS [None]
  - THERAPY NON-RESPONDER [None]
